FAERS Safety Report 7332219-4 (Version None)
Quarter: 2011Q1

REPORT INFORMATION
  Report Type: 
  Country: None (occurrence: None)
  Receive Date: 20110304
  Receipt Date: 20110301
  Transmission Date: 20110831
  Serious: Yes (Other)
  Sender: FDA-Public Use
  Company Number: CH-ABBOTT-11P-151-0707828-00

PATIENT
  Age: 38 Year
  Sex: Male

DRUGS (7)
  1. METHOTREXATE [Suspect]
     Indication: PSORIATIC ARTHROPATHY
     Dates: end: 20101101
  2. ARAVA [Concomitant]
     Indication: PSORIATIC ARTHROPATHY
     Dates: start: 20101123
  3. CYCLOSPORINE [Suspect]
  4. HUMIRA [Suspect]
     Indication: PSORIATIC ARTHROPATHY
     Dates: start: 20070314
  5. DAIVOBET [Concomitant]
     Indication: PSORIATIC ARTHROPATHY
  6. METHOTREXATE [Concomitant]
     Dates: end: 20101101
  7. HUMIRA [Suspect]

REACTIONS (5)
  - PSORIASIS [None]
  - DRUG INEFFECTIVE [None]
  - HEPATIC ENZYME ABNORMAL [None]
  - BLOOD TEST ABNORMAL [None]
  - SKIN DISORDER [None]
